FAERS Safety Report 9650335 (Version 2)
Quarter: 2013Q4

REPORT INFORMATION
  Report Type: Spontaneous
  Country: US (occurrence: US)
  Receive Date: 20131028
  Receipt Date: 20131028
  Transmission Date: 20140711
  Serious: No
  Sender: FDA-Public Use
  Company Number: US-PURDUE-USA-2010-0051991

PATIENT
  Sex: Male

DRUGS (2)
  1. OXYCONTIN (NDA 22-272) [Suspect]
     Indication: PAIN
     Dosage: 20 MG, TID
     Route: 048
  2. OXYCONTIN (NDA 22-272) [Suspect]
     Dosage: 10 MG, 3 TO 4 TIMES A DAY
     Route: 048

REACTIONS (3)
  - Malaise [Unknown]
  - Inadequate analgesia [Unknown]
  - Drug effect decreased [Unknown]
